FAERS Safety Report 6926788-3 (Version None)
Quarter: 2010Q3

REPORT INFORMATION
  Report Type: 
  Country: None (occurrence: None)
  Receive Date: 20100816
  Receipt Date: 20100610
  Transmission Date: 20110219
  Serious: No
  Sender: FDA-Public Use
  Company Number: US-ABBOTT-10P-163-0650076-00

PATIENT
  Sex: Female
  Weight: 85.806 kg

DRUGS (4)
  1. SIMCOR [Suspect]
     Indication: BLOOD TRIGLYCERIDES INCREASED
     Dosage: 1000/20MG AT BEDTIME
     Dates: start: 20100101, end: 20100501
  2. SIMCOR [Suspect]
  3. ACCUPRIL [Concomitant]
     Indication: PRODUCT USED FOR UNKNOWN INDICATION
  4. ESTRACE [Concomitant]
     Indication: PRODUCT USED FOR UNKNOWN INDICATION

REACTIONS (3)
  - FEELING HOT [None]
  - FLUSHING [None]
  - PRURITUS [None]
